FAERS Safety Report 5011645-2 (Version None)
Quarter: 2006Q2

REPORT INFORMATION
  Report Type: 
  Country: None (occurrence: None)
  Receive Date: 20060526
  Receipt Date: 20060522
  Transmission Date: 20061013
  Serious: Yes (Life-Threatening, Other)
  Sender: FDA-Public Use
  Company Number: KE-BOEHRINGER INGELHEIM PHARMACEUTICALS, INC.-2006-BP-05854BP

PATIENT
  Sex: Female
  Weight: 65 kg

DRUGS (2)
  1. VIRAMUNE [Suspect]
     Indication: VERTICAL INFECTION TRANSMISSION
     Dates: start: 20051130
  2. HAEMATINICS [Concomitant]
     Indication: ANAEMIA
     Dates: start: 20051130

REACTIONS (1)
  - ANAEMIA [None]
